FAERS Safety Report 8580282 (Version 2)
Quarter: 2013Q2

REPORT INFORMATION
  Report Type: Spontaneous
  Country: US (occurrence: US)
  Receive Date: 20120525
  Receipt Date: 20130625
  Transmission Date: 20140414
  Serious: No
  Sender: FDA-Public Use
  Company Number: US-GLAXOSMITHKLINE-A0970350A

PATIENT
  Age: 58 Year
  Sex: Female

DRUGS (5)
  1. VERAMYST [Suspect]
     Indication: NASAL CONGESTION
     Dosage: 1SPR SINGLE DOSE
     Route: 045
  2. LOVAZA [Suspect]
     Indication: BLOOD TRIGLYCERIDES INCREASED
     Dosage: 2G TWICE PER DAY
     Dates: start: 20130315, end: 20130316
  3. BETA BLOCKER [Concomitant]
  4. VASOTEC [Concomitant]
  5. CORGARD [Concomitant]

REACTIONS (9)
  - Bronchitis [Not Recovered/Not Resolved]
  - Hypersensitivity [Recovering/Resolving]
  - Urticaria [Recovering/Resolving]
  - Lip swelling [Recovering/Resolving]
  - Eye swelling [Recovering/Resolving]
  - Abnormal sensation in eye [Recovering/Resolving]
  - Eye irritation [Recovering/Resolving]
  - Vision blurred [Recovering/Resolving]
  - Vein discolouration [Recovering/Resolving]
